FAERS Safety Report 6389189-5 (Version None)
Quarter: 2009Q4

REPORT INFORMATION
  Report Type: 
  Country: None (occurrence: None)
  Receive Date: 20091006
  Receipt Date: 20070906
  Transmission Date: 20100525
  Serious: Yes (Other)
  Sender: FDA-Public Use
  Company Number: US-ASTRAZENECA-2006UW23285

PATIENT
  Age: 72 Year
  Sex: Female
  Weight: 82.2 kg

DRUGS (16)
  1. SEROQUEL [Suspect]
     Indication: DEPRESSION
     Route: 048
     Dates: start: 20000301
  2. SEROQUEL [Suspect]
     Dosage: 25 MG - 200 MG
     Route: 048
     Dates: start: 20010503, end: 20070712
  3. DEPAKOTE [Concomitant]
     Route: 048
     Dates: start: 20010529
  4. ARICEPT [Concomitant]
     Dosage: 5 MG - 10 MG
     Route: 048
     Dates: start: 20020301
  5. PLAVIX [Concomitant]
     Route: 048
     Dates: start: 20061026
  6. SYNTHROID [Concomitant]
     Dosage: 0.05 MG - 0.075 MG
     Route: 048
     Dates: start: 20020301
  7. PREDNISONE TAB [Concomitant]
     Dosage: TAPERING DOSE
     Route: 048
     Dates: start: 20000907
  8. POTASSIUM CHLORIDE [Concomitant]
     Dosage: 10 MEQ - 20 MEQ
     Route: 048
     Dates: start: 20061026
  9. ZOCOR [Concomitant]
     Route: 048
     Dates: start: 20020301
  10. HYDROCHLOROTHIAZIDE [Concomitant]
     Route: 048
     Dates: start: 20020301
  11. LASIX [Concomitant]
     Route: 048
     Dates: start: 20061026
  12. EFFEXOR [Concomitant]
     Route: 048
     Dates: start: 20020301
  13. TOPROL-XL [Concomitant]
     Route: 048
     Dates: start: 20061026
  14. PEPCID [Concomitant]
     Route: 048
     Dates: start: 20020301
  15. METHOTREXATE [Concomitant]
     Dosage: 2.5 MG FOUR TABLETS EVERY WEEK
     Route: 048
     Dates: start: 20061026
  16. PREMARIN [Concomitant]
     Route: 048
     Dates: start: 20020301

REACTIONS (4)
  - DIABETES MELLITUS [None]
  - HYPERINSULINAEMIA [None]
  - INSULIN RESISTANCE [None]
  - TYPE 2 DIABETES MELLITUS [None]
